FAERS Safety Report 13484385 (Version 1)
Quarter: 2017Q2

REPORT INFORMATION
  Report Type: Report from Study
  Country: US (occurrence: US)
  Receive Date: 20170425
  Receipt Date: 20170425
  Transmission Date: 20170830
  Serious: Yes (Hospitalization)
  Sender: FDA-Public Use
  Company Number: US-BIOGEN-2017BI00390533

PATIENT
  Sex: Female

DRUGS (1)
  1. ZINBRYTA [Suspect]
     Active Substance: DACLIZUMAB
     Indication: MULTIPLE SCLEROSIS
     Route: 058
     Dates: start: 201611, end: 201701

REACTIONS (5)
  - Pneumonia [Unknown]
  - Cystitis escherichia [Unknown]
  - Pyrexia [Unknown]
  - Blister [Unknown]
  - Blood phosphorus decreased [Unknown]
